FAERS Safety Report 5912513-1 (Version None)
Quarter: 2008Q4

REPORT INFORMATION
  Report Type: 
  Country: None (occurrence: None)
  Receive Date: 20081007
  Receipt Date: 20081007
  Transmission Date: 20090506
  Serious: Yes (Other)
  Sender: FDA-Public Use
  Company Number: None

PATIENT
  Age: 70 Year
  Sex: Male
  Weight: 83.4619 kg

DRUGS (2)
  1. CYMBALTA [Suspect]
     Indication: DEPRESSION
     Dosage: ONE TABLET DAILY ONE TABLET DAILY PO
     Route: 048
     Dates: start: 20080820, end: 20081003
  2. CYMBALTA [Suspect]
     Indication: NEUROPATHY PERIPHERAL
     Dosage: ONE TABLET DAILY ONE TABLET DAILY PO
     Route: 048
     Dates: start: 20080820, end: 20081003

REACTIONS (6)
  - ABNORMAL DREAMS [None]
  - MOVEMENT DISORDER [None]
  - MUSCLE TWITCHING [None]
  - SLEEP DISORDER [None]
  - SLEEP TALKING [None]
  - SPEECH DISORDER [None]
